FAERS Safety Report 24983833 (Version 1)
Quarter: 2025Q1

REPORT INFORMATION
  Report Type: Spontaneous
  Country: BE (occurrence: BE)
  Receive Date: 20250219
  Receipt Date: 20250219
  Transmission Date: 20250409
  Serious: Yes (Other)
  Sender: ROCHE
  Company Number: BE-002147023-NVSC2025BE026400

PATIENT
  Sex: Male

DRUGS (2)
  1. LUCENTIS [Suspect]
     Active Substance: RANIBIZUMAB
     Indication: Age-related macular degeneration
     Route: 050
     Dates: start: 2021, end: 2022
  2. LUCENTIS [Suspect]
     Active Substance: RANIBIZUMAB
     Indication: Vitreous haemorrhage

REACTIONS (5)
  - Vitreous haemorrhage [Recovering/Resolving]
  - Haemorrhage [Recovering/Resolving]
  - Neovascularisation [Unknown]
  - Serositis [Unknown]
  - Drug ineffective [Unknown]

NARRATIVE: CASE EVENT DATE: 20220501
